FAERS Safety Report 9210439 (Version 1)
Quarter: 2013Q2

REPORT INFORMATION
  Report Type: Spontaneous
  Country: US (occurrence: US)
  Receive Date: 20130404
  Receipt Date: 20130404
  Transmission Date: 20140414
  Serious: Yes (Other)
  Sender: FDA-Public Use
  Company Number: US-JNJFOC-20130316404

PATIENT
  Sex: Male

DRUGS (3)
  1. ZYTIGA [Suspect]
     Indication: PROSTATE CANCER
     Dosage: 2 TABLETS OF STRENGTH 250MG
     Route: 048
     Dates: start: 201212, end: 2013
  2. ZYTIGA [Suspect]
     Indication: PROSTATE CANCER
     Dosage: 4 TABLETS OF STRENGTH 250MG
     Route: 048
     Dates: start: 201207, end: 201212
  3. ZYTIGA [Suspect]
     Indication: PROSTATE CANCER
     Dosage: 3 TABLETS OF STRENGTH 250MG
     Route: 048
     Dates: start: 2013

REACTIONS (4)
  - Malignant neoplasm progression [Not Recovered/Not Resolved]
  - Irritable bowel syndrome [Recovering/Resolving]
  - Pain [Not Recovered/Not Resolved]
  - Medication error [Unknown]
